FAERS Safety Report 6221388-5 (Version None)
Quarter: 2009Q2

REPORT INFORMATION
  Report Type: 
  Country: None (occurrence: None)
  Receive Date: 20090608
  Receipt Date: 20090522
  Transmission Date: 20091009
  Serious: Yes (Hospitalization)
  Sender: FDA-Public Use
  Company Number: 2009AL003567

PATIENT
  Age: 84 Year
  Sex: Female

DRUGS (3)
  1. DIGOXIN [Suspect]
     Indication: CARDIAC FAILURE
     Dosage: PO
     Route: 048
  2. FUROSEMIDE [Concomitant]
  3. WARFARIN SODIUM [Concomitant]

REACTIONS (4)
  - BLOOD PRESSURE SYSTOLIC DECREASED [None]
  - DRUG INTERACTION [None]
  - LOSS OF CONSCIOUSNESS [None]
  - PERICARDIAL EFFUSION [None]
